FAERS Safety Report 4389972-1 (Version None)
Quarter: 2004Q2

REPORT INFORMATION
  Report Type: 
  Country: None (occurrence: None)
  Receive Date: 20040630
  Receipt Date: 20040615
  Transmission Date: 20050107
  Serious: Yes (Hospitalization)
  Sender: FDA-Public Use
  Company Number: 2004CG00487

PATIENT
  Age: 76 Year
  Sex: Male
  Weight: 77 kg

DRUGS (5)
  1. PULMICORT [Suspect]
     Indication: ASTHMA
     Dosage: 200 UG BID IH
     Route: 055
     Dates: start: 19960226, end: 20030814
  2. PULMICORT [Suspect]
     Indication: CHRONIC OBSTRUCTIVE AIRWAYS DISEASE
     Dosage: 200 UG BID IH
     Route: 055
     Dates: start: 19960226, end: 20030814
  3. HYZAAR [Concomitant]
  4. ALOPURINOL ^BELUPO^ [Concomitant]
  5. PIASCLEDINE [Concomitant]

REACTIONS (2)
  - FIBROSIS [None]
  - OSTEONECROSIS [None]
